FAERS Safety Report 6023032-9 (Version None)
Quarter: 2008Q4

REPORT INFORMATION
  Report Type: 
  Country: None (occurrence: None)
  Receive Date: 20081230
  Receipt Date: 20081223
  Transmission Date: 20090506
  Serious: Yes (Death)
  Sender: FDA-Public Use
  Company Number: US-ASTRAZENECA-2008AC03280

PATIENT
  Age: 34 Year
  Sex: Male

DRUGS (11)
  1. ATENOLOL [Suspect]
     Route: 048
  2. COLCHICINE [Suspect]
  3. PHENYTOIN [Suspect]
  4. FENOFIBRATE [Suspect]
  5. TRAZODONE [Suspect]
  6. OXYCODONE [Suspect]
  7. GEMFIBROZIL [Suspect]
  8. MIRTAZAPINE [Suspect]
  9. HALOPERIDOL [Suspect]
  10. INDOMETHACIN [Suspect]
  11. LOSARTAN [Suspect]

REACTIONS (1)
  - COMPLETED SUICIDE [None]
